FAERS Safety Report 21256868 (Version 1)
Quarter: 2022Q3

REPORT INFORMATION
  Report Type: Spontaneous
  Country: AU (occurrence: AU)
  Receive Date: 20220826
  Receipt Date: 20220826
  Transmission Date: 20221026
  Serious: Yes (Other)
  Sender: FDA-Public Use
  Company Number: AU-drreddys-SPO/AUS/22/0153611

PATIENT
  Sex: Male

DRUGS (4)
  1. DASATINIB [Suspect]
     Active Substance: DASATINIB
     Indication: Product used for unknown indication
  2. IMATINIB [Suspect]
     Active Substance: IMATINIB
     Indication: Product used for unknown indication
  3. NILOTINIB [Suspect]
     Active Substance: NILOTINIB
     Indication: Product used for unknown indication
  4. PONATINIB [Concomitant]
     Active Substance: PONATINIB
     Indication: Product used for unknown indication

REACTIONS (3)
  - Cytopenia [Unknown]
  - Drug resistance [Unknown]
  - Drug ineffective [Unknown]
